FAERS Safety Report 10924080 (Version 4)
Quarter: 2015Q2

REPORT INFORMATION
  Report Type: Spontaneous
  Country: US (occurrence: US)
  Receive Date: 20150318
  Receipt Date: 20150605
  Transmission Date: 20150821
  Serious: Yes (Other)
  Sender: FDA-Public Use
  Company Number: US-JNJFOC-20140924279

PATIENT

DRUGS (2)
  1. ITRACONAZOLE. [Suspect]
     Active Substance: ITRACONAZOLE
     Indication: BASAL CELL CARCINOMA
     Route: 048
  2. ARSENIC TRIOXIDE [Suspect]
     Active Substance: ARSENIC TRIOXIDE
     Indication: BASAL CELL CARCINOMA
     Dosage: 0.30 MG.KG FOR 5 DAYS, EVERY 28 DAYS) FOR TOTAL 3 CYCLES
     Route: 042

REACTIONS (6)
  - Disease progression [Unknown]
  - Lymphopenia [Unknown]
  - Off label use [Unknown]
  - Transaminases increased [Unknown]
  - Sepsis [Unknown]
  - Fatigue [Unknown]
